FAERS Safety Report 6538139-7 (Version None)
Quarter: 2010Q1

REPORT INFORMATION
  Report Type: 
  Country: None (occurrence: None)
  Receive Date: 20100114
  Receipt Date: 20100106
  Transmission Date: 20100710
  Serious: Yes (Death, Hospitalization)
  Sender: FDA-Public Use
  Company Number: FR-WYE-H12944010

PATIENT
  Age: 81 Year
  Sex: Female

DRUGS (3)
  1. AMIODARONE HCL [Suspect]
     Indication: DRUG USE FOR UNKNOWN INDICATION
     Dosage: 200 MG TABLET (DOSE AND REGIMEN UNKNOWN)
     Route: 048
     Dates: end: 20090301
  2. LASILIX [Concomitant]
     Dosage: UNKNOWN
     Route: 065
  3. NEBIVOLOL [Suspect]
     Indication: DRUG USE FOR UNKNOWN INDICATION
     Route: 048
     Dates: start: 20090101, end: 20090301

REACTIONS (1)
  - BRADYCARDIA [None]
